FAERS Safety Report 16076878 (Version 3)
Quarter: 2019Q2

REPORT INFORMATION
  Report Type: Spontaneous
  Country: SE (occurrence: SE)
  Receive Date: 20190315
  Receipt Date: 20190409
  Transmission Date: 20190711
  Serious: Yes (Other)
  Sender: FDA-Public Use
  Company Number: SE-009507513-1903SWE004324

PATIENT

DRUGS (4)
  1. DESLORATADINE. [Suspect]
     Active Substance: DESLORATADINE
     Indication: THROAT IRRITATION
  2. DESLORATADINE. [Suspect]
     Active Substance: DESLORATADINE
     Indication: HYPERSENSITIVITY
     Dosage: 5 MILLIGRAM, QPM (ONE TABLET IN THE EVENING), FILM COATED TABLET
     Route: 048
     Dates: start: 20190219, end: 20190219
  3. DIGESTA (SIMETHICONE) [Concomitant]
     Indication: DYSPEPSIA
     Dosage: UNK
     Route: 048
  4. VENTOLINE (ALBUTEROL) [Suspect]
     Active Substance: ALBUTEROL
     Indication: PRODUCT USED FOR UNKNOWN INDICATION
     Dosage: 1 DOSAGE FORM
     Route: 065
     Dates: start: 20190219

REACTIONS (4)
  - Hypersensitivity [Unknown]
  - Ill-defined disorder [Unknown]
  - Syncope [Recovered/Resolved]
  - Condition aggravated [Unknown]

NARRATIVE: CASE EVENT DATE: 20190219
